FAERS Safety Report 4263824-X (Version None)
Quarter: 2004Q1

REPORT INFORMATION
  Report Type: 
  Country: None (occurrence: None)
  Receive Date: 20040105
  Receipt Date: 20040105
  Transmission Date: 20041129
  Serious: Yes (Hospitalization)
  Sender: FDA-Public Use
  Company Number: None

PATIENT
  Age: 48 Year
  Sex: Male
  Weight: 79.8331 kg

DRUGS (3)
  1. CPT-11 70MG/M2 [Suspect]
     Indication: COLON CANCER
     Dosage: CPT-11 D 1 AMD 8 Q 21 DAYS
     Dates: start: 20031030, end: 20031225
  2. CAPECITIBINE 2.0 GM/M2 [Suspect]
     Indication: COLON CANCER
     Dosage: CAPECITIBINE D 1-14
     Dates: start: 20031030, end: 20031226
  3. CELEBREX [Suspect]
     Indication: COLON CANCER
     Dosage: CELEBREX QD
     Dates: start: 20031030, end: 20031226

REACTIONS (7)
  - DEHYDRATION [None]
  - DIARRHOEA [None]
  - DIZZINESS [None]
  - HYPOTENSION [None]
  - NAUSEA [None]
  - URINARY TRACT INFECTION [None]
  - VOMITING [None]
